FAERS Safety Report 7720837-0 (Version None)
Quarter: 2011Q3

REPORT INFORMATION
  Report Type: 
  Country: None (occurrence: None)
  Receive Date: 20110825
  Receipt Date: 20110811
  Transmission Date: 20111222
  Serious: Yes (Hospitalization)
  Sender: FDA-Public Use
  Company Number: 15928674

PATIENT
  Age: 86 Year
  Sex: Female

DRUGS (8)
  1. APIXABAN [Suspect]
     Indication: EMBOLISM
     Dosage: 5 MILLIGRAM 1 DAY
     Route: 048
     Dates: start: 20110721
  2. LORATADINE [Concomitant]
  3. DIAZEPAM [Concomitant]
  4. PLACEBO [Suspect]
     Indication: EMBOLISM
     Dates: start: 20110701
  5. WARFARIN SODIUM [Suspect]
     Indication: EMBOLISM
     Dosage: 6 MILLIGRAM 1 DAY
     Route: 048
     Dates: start: 20110714
  6. CAPTOPRIL [Concomitant]
  7. VERAPAMIL (VERAPAMIL HCL) [Concomitant]
  8. ENOXAPARIN SODIUM [Suspect]
     Indication: EMBOLISM

REACTIONS (2)
  - BRONCHOPNEUMONIA [None]
  - INFECTION [None]
